FAERS Safety Report 5897358-3 (Version None)
Quarter: 2008Q3

REPORT INFORMATION
  Report Type: 
  Country: None (occurrence: None)
  Receive Date: 20080925
  Receipt Date: 20080915
  Transmission Date: 20090109
  Serious: Yes (Other)
  Sender: FDA-Public Use
  Company Number: US-BAYER-200830877NA

PATIENT
  Age: 73 Year
  Sex: Female
  Weight: 82 kg

DRUGS (10)
  1. BETASERON [Suspect]
     Indication: RELAPSING-REMITTING MULTIPLE SCLEROSIS
     Dosage: TOTAL DAILY DOSE: 2 MIU
     Route: 058
     Dates: start: 20061009, end: 20060101
  2. BETASERON [Suspect]
     Dosage: TOTAL DAILY DOSE: 8 MIU
     Route: 058
     Dates: start: 20060101
  3. BETASERON [Suspect]
     Dosage: AS USED: 8 MIU
     Route: 058
     Dates: start: 20070101, end: 20080317
  4. ACTONEL [Concomitant]
     Dosage: TOTAL DAILY DOSE: 70 MG
  5. FELODIPINE [Concomitant]
     Dosage: TOTAL DAILY DOSE: 5 MG
  6. LEVOXYL [Concomitant]
     Dosage: TOTAL DAILY DOSE: 75 ?G
  7. CALCIUM GLUCONATE [Concomitant]
     Dosage: TOTAL DAILY DOSE: 1200 MG
  8. TYSABRI [Concomitant]
  9. CENTRUM SILVER [Concomitant]
     Dosage: TOTAL DAILY DOSE: 1 DF
  10. CHOLECALCIFEROL [Concomitant]
     Dosage: TOTAL DAILY DOSE: 50000 U
     Dates: start: 20060101

REACTIONS (1)
  - BASAL CELL CARCINOMA [None]
